FAERS Safety Report 5822481-9 (Version None)
Quarter: 2008Q3

REPORT INFORMATION
  Report Type: 
  Country: None (occurrence: None)
  Receive Date: 20080722
  Receipt Date: 20080708
  Transmission Date: 20090109
  Serious: Yes (Other)
  Sender: FDA-Public Use
  Company Number: TPH-00070

PATIENT
  Sex: Female

DRUGS (1)
  1. TRIQUILAR [Suspect]
     Indication: CONTRACEPTION
     Dosage: TRANSPLACENTAL
     Route: 064
     Dates: start: 20070801, end: 20071001

REACTIONS (2)
  - MATERNAL DRUGS AFFECTING FOETUS [None]
  - NEONATAL CARDIAC FAILURE [None]
